FAERS Safety Report 9714932 (Version 1)
Quarter: 2013Q4

REPORT INFORMATION
  Report Type: Spontaneous
  Country: GB (occurrence: None)
  Receive Date: 20131125
  Receipt Date: 20131125
  Transmission Date: 20140711
  Serious: Yes (Other)
  Sender: FDA-Public Use
  Company Number: AUR-APL-2013-09724

PATIENT
  Age: 24 Year
  Sex: Female
  Weight: 60 kg

DRUGS (1)
  1. PAROXETINE (PAROXETINE) [Suspect]
     Indication: POST-TRAUMATIC STRESS DISORDER
     Route: 048
     Dates: start: 20130903, end: 20130907

REACTIONS (5)
  - Convulsion [None]
  - Fall [None]
  - Loss of consciousness [None]
  - Dyskinesia [None]
  - Foaming at mouth [None]
